FAERS Safety Report 9167568 (Version 2)
Quarter: 2013Q1

REPORT INFORMATION
  Report Type: Report from Study
  Country: US (occurrence: US)
  Receive Date: 20130318
  Receipt Date: 20130319
  Transmission Date: 20140127
  Serious: Yes (Hospitalization)
  Sender: FDA-Public Use
  Company Number: US-JNJFOC-20130305922

PATIENT
  Age: 17 Year
  Sex: Male
  Weight: 60.6 kg

DRUGS (9)
  1. REMICADE [Suspect]
     Indication: CROHN^S DISEASE
     Route: 042
     Dates: start: 20071228
  2. CIMZIA [Concomitant]
     Route: 065
     Dates: start: 20121120
  3. CIMZIA [Concomitant]
     Route: 065
     Dates: start: 20121220, end: 20130108
  4. METHOTREXATE [Concomitant]
     Route: 065
  5. VITAMIN D [Concomitant]
     Route: 065
  6. PREDNISONE [Concomitant]
     Route: 065
  7. FOLIC ACID [Concomitant]
     Route: 065
  8. 5-ASA [Concomitant]
     Route: 048
  9. ANTIBIOTICS FOR IBD [Concomitant]
     Indication: INFLAMMATORY BOWEL DISEASE
     Route: 065

REACTIONS (1)
  - Crohn^s disease [Recovered/Resolved]
